FAERS Safety Report 8220165-3 (Version None)
Quarter: 2012Q1

REPORT INFORMATION
  Report Type: 
  Country: None (occurrence: None)
  Receive Date: 20120320
  Receipt Date: 20120307
  Transmission Date: 20120608
  Serious: Yes (Hospitalization)
  Sender: FDA-Public Use
  Company Number: US-BAYER-2011-093545

PATIENT
  Age: 21 Year
  Sex: Female
  Weight: 54.422 kg

DRUGS (12)
  1. YASMIN [Suspect]
     Indication: OVARIAN CYST
     Dosage: UNK
     Route: 048
     Dates: start: 20060101, end: 20100801
  2. DROSPIRENONE AND ETHINYL ESTRADIOL [Suspect]
     Indication: OVARIAN CYST
     Dosage: UNK
     Route: 048
     Dates: start: 20060101, end: 20100801
  3. PROMETHAZINE [Concomitant]
     Dosage: 25 MG, UNK
     Dates: start: 20091024
  4. IBUPROFEN [Concomitant]
     Indication: ANALGESIC THERAPY
     Dosage: 2 DAILY AS NEEDED
     Dates: start: 20090101
  5. PROMETHAZINE [Concomitant]
     Dosage: 25 MG, UNK
     Dates: start: 20091002
  6. NAPROXEN (ALEVE) [Concomitant]
     Indication: ANALGESIC THERAPY
     Dosage: 2 DAILY AS NEEDED
     Dates: start: 20090101
  7. ADDERALL 5 [Concomitant]
     Indication: ATTENTION DEFICIT/HYPERACTIVITY DISORDER
     Dosage: UNK
     Dates: start: 20060301
  8. CIPROFLOXACIN [Concomitant]
     Dosage: UNK
     Dates: start: 20091013
  9. AMOXICILLIN [Concomitant]
     Dosage: 500 MG, UNK
     Dates: start: 20091001
  10. PROPOXYPHENE NAPSYLATE W/PARACETAMOL [Concomitant]
     Dosage: UNK
     Dates: start: 20091013
  11. DEXTROAMPHETAMINE [Concomitant]
     Dosage: 20 MG, UNK
     Dates: start: 20090909, end: 20091021
  12. FLUVIRIN [Concomitant]
     Dosage: 5 ML, UNK
     Dates: start: 20090914

REACTIONS (8)
  - GALLBLADDER DISORDER [None]
  - ANHEDONIA [None]
  - GENERAL PHYSICAL HEALTH DETERIORATION [None]
  - ANXIETY [None]
  - CHOLELITHIASIS [None]
  - INJURY [None]
  - EMOTIONAL DISTRESS [None]
  - PAIN [None]
